FAERS Safety Report 8549726-9 (Version None)
Quarter: 2012Q3

REPORT INFORMATION
  Report Type: 
  Country: None (occurrence: None)
  Receive Date: 20120730
  Receipt Date: 20120723
  Transmission Date: 20120928
  Serious: Yes (Hospitalization)
  Sender: FDA-Public Use
  Company Number: ES-009507513-1207ESP011058

PATIENT

DRUGS (3)
  1. COPEGUS [Suspect]
     Route: 048
     Dates: start: 20120323, end: 20120519
  2. VICTRELIS [Suspect]
     Indication: HEPATITIS C
     Route: 048
     Dates: start: 20120322, end: 20120519
  3. PEGASYS [Suspect]
     Indication: HEPATITIS C
     Dosage: 180 WEEKLY
     Route: 058
     Dates: start: 20120322, end: 20120519

REACTIONS (4)
  - HAEMOLYTIC ANAEMIA [None]
  - THROMBOCYTOPENIA [None]
  - TRANSFUSION REACTION [None]
  - ANGINA PECTORIS [None]
